FAERS Safety Report 11840391 (Version 1)
Quarter: 2015Q4

REPORT INFORMATION
  Report Type: Spontaneous
  Country: US (occurrence: None)
  Receive Date: 20151215
  Receipt Date: 20151215
  Transmission Date: 20160305
  Serious: Yes (Hospitalization)
  Sender: FDA-Public Use
  Company Number: None

PATIENT
  Age: 63 Year
  Sex: Male
  Weight: 104 kg

DRUGS (10)
  1. AMITRIPTYLINE [Concomitant]
     Active Substance: AMITRIPTYLINE
  2. ADVAIR DISKUS [Concomitant]
     Active Substance: FLUTICASONE PROPIONATE\SALMETEROL XINAFOATE
  3. ALBUTEROL HFA [Concomitant]
     Active Substance: ALBUTEROL SULFATE
  4. VITAMIN D [Concomitant]
     Active Substance: CHOLECALCIFEROL
  5. PROCHLOPERAZINE SUPPOSITORY [Concomitant]
  6. OPDIVO [Suspect]
     Active Substance: NIVOLUMAB
     Indication: METASTATIC MALIGNANT MELANOMA
     Dosage: 3 MG/KG (312MG) ONCE
     Route: 042
     Dates: start: 20151020, end: 20151020
  7. OMEPRAZOLE. [Concomitant]
     Active Substance: OMEPRAZOLE
  8. ONDANSETRON [Concomitant]
     Active Substance: ONDANSETRON
  9. BENZONATATE. [Concomitant]
     Active Substance: BENZONATATE
  10. FIORICET [Concomitant]
     Active Substance: ACETAMINOPHEN\BUTALBITAL\CAFFEINE

REACTIONS (7)
  - Pneumothorax [None]
  - Viral infection [None]
  - Hypoxia [None]
  - Enterovirus test positive [None]
  - Pneumomediastinum [None]
  - Pulmonary fibrosis [None]
  - Human rhinovirus test positive [None]

NARRATIVE: CASE EVENT DATE: 20151026
